FAERS Safety Report 22214373 (Version 1)
Quarter: 2023Q2

REPORT INFORMATION
  Report Type: Spontaneous
  Country: FR (occurrence: FR)
  Receive Date: 20230414
  Receipt Date: 20230414
  Transmission Date: 20230721
  Serious: Yes (Other)
  Sender: FDA-Public Use
  Company Number: FR-ZAMBON SWITZERLAND LTD.-2023FR000023

PATIENT

DRUGS (8)
  1. FOSFOMYCIN TROMETHAMINE [Suspect]
     Active Substance: FOSFOMYCIN TROMETHAMINE
     Indication: Product used for unknown indication
     Dosage: 2 DF, 1/WEEK
     Route: 065
  2. NICARDIPINE HYDROCHLORIDE [Suspect]
     Active Substance: NICARDIPINE HYDROCHLORIDE
     Indication: Product used for unknown indication
     Dosage: 50 MG, DAILY
     Route: 065
  3. MOMETASONE [Suspect]
     Active Substance: MOMETASONE
     Indication: Rhinitis
     Dosage: 50 UG, UNK
     Route: 055
     Dates: start: 20171201, end: 20180501
  4. CLOPIDOGREL BISULFATE [Suspect]
     Active Substance: CLOPIDOGREL BISULFATE
     Indication: Product used for unknown indication
     Dosage: 75 MG, DAILY
     Route: 065
  5. LANTUS [Suspect]
     Active Substance: INSULIN GLARGINE
     Indication: Product used for unknown indication
     Dosage: UNK
     Route: 065
  6. RAMIPRIL [Suspect]
     Active Substance: RAMIPRIL
     Indication: Product used for unknown indication
     Dosage: 5 MG, DAILY
     Route: 065
     Dates: start: 201806
  7. RAMIPRIL [Suspect]
     Active Substance: RAMIPRIL
     Dosage: 2.5 MG, BID
     Route: 065
     Dates: start: 201712, end: 201806
  8. PANTOPRAZOLE [Suspect]
     Active Substance: PANTOPRAZOLE
     Indication: Product used for unknown indication
     Dosage: 20 MG, UNK
     Route: 065

REACTIONS (2)
  - Dementia [Unknown]
  - Product use issue [Unknown]

NARRATIVE: CASE EVENT DATE: 20171201
